FAERS Safety Report 17820241 (Version 1)
Quarter: 2020Q2

REPORT INFORMATION
  Report Type: Spontaneous
  Country: FR (occurrence: FR)
  Receive Date: 20200525
  Receipt Date: 20200525
  Transmission Date: 20200714
  Serious: Yes (Other)
  Sender: FDA-Public Use
  Company Number: FR-ROCHE-2606839

PATIENT
  Age: 61 Year
  Sex: Female

DRUGS (3)
  1. TANGANIL [Suspect]
     Active Substance: ACETYLLEUCINE
     Indication: VERTIGO
     Dosage: INCONNUE
     Route: 048
     Dates: end: 2020
  2. ALECENSA [Suspect]
     Active Substance: ALECTINIB HYDROCHLORIDE
     Indication: LUNG NEOPLASM MALIGNANT
     Dosage: INCONNUE
     Route: 048
     Dates: start: 2020, end: 2020
  3. SOLUPRED [PREDNISOLONE METASULFOBENZOATE SODIUM] [Suspect]
     Active Substance: PREDNISOLONE SODIUM METAZOATE
     Indication: METASTASES TO CENTRAL NERVOUS SYSTEM
     Dosage: INCONNUE
     Route: 048
     Dates: end: 2020

REACTIONS (2)
  - Mucosal inflammation [Recovering/Resolving]
  - Toxic skin eruption [Recovering/Resolving]

NARRATIVE: CASE EVENT DATE: 202003
